FAERS Safety Report 12906381 (Version 3)
Quarter: 2018Q2

REPORT INFORMATION
  Report Type: Spontaneous
  Country: US (occurrence: US)
  Receive Date: 20161103
  Receipt Date: 20180425
  Transmission Date: 20180711
  Serious: No
  Sender: FDA-Public Use
  Company Number: US-PFIZER INC-2016509128

PATIENT
  Age: 80 Year
  Sex: Female

DRUGS (8)
  1. BENTYL [Concomitant]
     Active Substance: DICYCLOMINE HYDROCHLORIDE
     Dosage: 10 MG, UNK
  2. AMLODIPINE [Concomitant]
     Active Substance: AMLODIPINE BESYLATE
     Dosage: 2.5 MG, UNK
  3. PANTOPRAZOLE SODIUM. [Concomitant]
     Active Substance: PANTOPRAZOLE SODIUM
     Dosage: UNK
  4. MECLIZINE [Concomitant]
     Active Substance: MECLIZINE HYDROCHLORIDE
     Dosage: 12.5 MG, UNK
  5. FASLODEX [Suspect]
     Active Substance: FULVESTRANT
     Dosage: UNK
     Dates: start: 20160727
  6. IBRANCE [Suspect]
     Active Substance: PALBOCICLIB
     Indication: OCCUPATIONAL EXPOSURE TO RADIATION
     Dosage: 100 MG, CYCLIC (ONCE DAILY WITH FOOD FOR 21 DAYS, THEN 7 DAYS OFF)
     Route: 048
     Dates: start: 20160727
  7. DYCLONINE [Concomitant]
     Active Substance: DYCLONINE
     Dosage: UNK
  8. CHERATUSSIN [Concomitant]
     Active Substance: AMMONIUM CHLORIDE\DEXTROMETHORPHAN\SODIUM CITRATE
     Dosage: UNK, [100-10/5]

REACTIONS (4)
  - Injection site pain [Unknown]
  - Diverticulum [Not Recovered/Not Resolved]
  - Product use in unapproved indication [Unknown]
  - Fatigue [Not Recovered/Not Resolved]
